FAERS Safety Report 12206958 (Version 1)
Quarter: 2016Q1

REPORT INFORMATION
  Report Type: Spontaneous
  Country: US (occurrence: None)
  Receive Date: 20160323
  Receipt Date: 20160323
  Transmission Date: 20160526
  Serious: No
  Sender: FDA-Public Use
  Company Number: None

PATIENT
  Age: 68 Year
  Sex: Female
  Weight: 62.6 kg

DRUGS (2)
  1. DICLOFEN POT 50MG TAB MYLAN [Suspect]
     Active Substance: DICLOFENAC POTASSIUM
     Indication: OSTEOARTHRITIS
     Route: 048
     Dates: start: 20160307, end: 20160307
  2. VITAMIN D [Concomitant]
     Active Substance: CHOLECALCIFEROL

REACTIONS (3)
  - Abdominal distension [None]
  - Abdominal pain upper [None]
  - Diarrhoea [None]

NARRATIVE: CASE EVENT DATE: 20160307
